FAERS Safety Report 9559582 (Version 1)
Quarter: 2013Q3

REPORT INFORMATION
  Report Type: Spontaneous
  Country: US (occurrence: None)
  Receive Date: 20130924
  Receipt Date: 20130924
  Transmission Date: 20140515
  Serious: Yes (Hospitalization, Other)
  Sender: FDA-Public Use
  Company Number: 13-03970

PATIENT
  Age: 61 Year
  Sex: Female

DRUGS (3)
  1. ASTHMANEFRIN INHALATION SOLUTION, 2.25% [Suspect]
     Indication: ASTHMA
     Dosage: 3 INHALATIONS ONCE 054
     Route: 055
     Dates: start: 20130825
  2. ASTHMANEFRIN INHALATION SOLUTION, 2.25% [Suspect]
     Indication: CHRONIC OBSTRUCTIVE PULMONARY DISEASE
     Dosage: 3 INHALATIONS ONCE 054
     Route: 055
     Dates: start: 20130825
  3. EZ BREATHE ATOMIZER [Concomitant]

REACTIONS (5)
  - Loss of consciousness [None]
  - Bronchitis [None]
  - Pneumonia [None]
  - Liver injury [None]
  - Renal disorder [None]
